FAERS Safety Report 11777840 (Version 1)
Quarter: 2015Q4

REPORT INFORMATION
  Report Type: Spontaneous
  Country: US (occurrence: US)
  Receive Date: 20151125
  Receipt Date: 20151125
  Transmission Date: 20160304
  Serious: No
  Sender: FDA-Public Use
  Company Number: US-THE MEDICINES COMPANY-US-MDCO-15-00213

PATIENT
  Age: 77 Year
  Sex: Female

DRUGS (2)
  1. ANGIOMAX [Suspect]
     Active Substance: BIVALIRUDIN
     Route: 041
  2. ANGIOMAX [Suspect]
     Active Substance: BIVALIRUDIN
     Indication: HEPARIN-INDUCED THROMBOCYTOPENIA
     Dosage: NOT REPORTED
     Route: 041
     Dates: start: 20150304

REACTIONS (2)
  - Off label use [Unknown]
  - Infusion site extravasation [Unknown]

NARRATIVE: CASE EVENT DATE: 20150304
